FAERS Safety Report 14915161 (Version 2)
Quarter: 2018Q2

REPORT INFORMATION
  Report Type: Not Available
  Country: US (occurrence: US)
  Receive Date: 20180518
  Receipt Date: 20180604
  Transmission Date: 20180711
  Serious: Yes (Hospitalization)
  Sender: FDA-Public Use
  Company Number: US-NEUROCRINE BIOSCIENCES INC.-2018NBI01446

PATIENT
  Sex: Female

DRUGS (21)
  1. INGREZZA [Suspect]
     Active Substance: VALBENAZINE
     Indication: TARDIVE DYSKINESIA
     Route: 048
     Dates: start: 20170706, end: 20170713
  2. ASPIRIN. [Concomitant]
     Active Substance: ASPIRIN
  3. ARIPIPRAZOLE. [Concomitant]
     Active Substance: ARIPIPRAZOLE
  4. CLONIDINE. [Concomitant]
     Active Substance: CLONIDINE
  5. INGREZZA [Suspect]
     Active Substance: VALBENAZINE
     Route: 048
     Dates: start: 20170714
  6. AMLODIPINE [Concomitant]
     Active Substance: AMLODIPINE BESYLATE
  7. LEVOTHYROXINE. [Concomitant]
     Active Substance: LEVOTHYROXINE
  8. ROPINIROLE. [Concomitant]
     Active Substance: ROPINIROLE
  9. TOLTERODINE [Concomitant]
     Active Substance: TOLTERODINE
  10. METHYLPHENIDATE. [Concomitant]
     Active Substance: METHYLPHENIDATE
  11. VALSARTAN. [Concomitant]
     Active Substance: VALSARTAN
  12. CLOZAPINE. [Concomitant]
     Active Substance: CLOZAPINE
  13. TAB-A-VITE [Concomitant]
  14. METFORMIN HYDROCHLORIDE. [Concomitant]
     Active Substance: METFORMIN HYDROCHLORIDE
  15. ESZOPICLONE. [Concomitant]
     Active Substance: ESZOPICLONE
  16. BUPROBAN [Concomitant]
     Active Substance: BUPROPION HYDROCHLORIDE
  17. ATENOLOL. [Concomitant]
     Active Substance: ATENOLOL
  18. BENZTROPINE. [Concomitant]
     Active Substance: BENZTROPINE
  19. FERROUS SULFATE ER [Concomitant]
  20. VITAMIN D [Concomitant]
     Active Substance: CHOLECALCIFEROL
  21. OMEPRAZOLE. [Concomitant]
     Active Substance: OMEPRAZOLE

REACTIONS (1)
  - Psychotic disorder [Unknown]

NARRATIVE: CASE EVENT DATE: 2018
